FAERS Safety Report 9696226 (Version 1)
Quarter: 2013Q4

REPORT INFORMATION
  Report Type: Spontaneous
  Country: FR (occurrence: None)
  Receive Date: 20131115
  Receipt Date: 20131115
  Transmission Date: 20140711
  Serious: Yes (Hospitalization)
  Sender: FDA-Public Use
  Company Number: 2009317

PATIENT
  Age: 66 Year
  Sex: Female

DRUGS (8)
  1. (GEMCITABINE HYDROCHLORIDE) [Suspect]
     Indication: ADENOCARCINOMA
     Dosage: 850 MG MILLIGRAM(S), UNKNOWN, INTRAVENOUS DRIP
     Route: 041
     Dates: start: 20130418, end: 20130418
  2. (CARBOPLATIN) [Suspect]
     Indication: ADENOCARCINOMA
     Dosage: 481 MG MILLIGRAM(S) (UNKNOWN) INTRAVENOUS DRIP
     Route: 041
     Dates: start: 20130418, end: 20130418
  3. (KENZEN) [Concomitant]
  4. (FLECAINE) [Concomitant]
  5. (KARDEGIC) [Concomitant]
  6. (CORTANCYL) [Concomitant]
  7. (ZOPHREN /00955301/) [Concomitant]
  8. (EMEND /01627301/) [Concomitant]

REACTIONS (4)
  - Erythema [None]
  - Burning sensation [None]
  - Sneezing [None]
  - Muscle tightness [None]
